FAERS Safety Report 8337348-4 (Version None)
Quarter: 2012Q2

REPORT INFORMATION
  Report Type: 
  Country: None (occurrence: None)
  Receive Date: 20120502
  Receipt Date: 20120427
  Transmission Date: 20120825
  Serious: Yes (Other)
  Sender: FDA-Public Use
  Company Number: A0975454A

PATIENT
  Age: 21 Year
  Sex: Male

DRUGS (1)
  1. ASPIRIN + CAFFEINE+ SALICYLAMIDE (ASPIRIN + AFFEINE+ SALICYLA) [Suspect]
     Indication: PRODUCT USED FOR UNKNOWN INDICATION
     Dosage: UNK

REACTIONS (1)
  - HAEMATEMESIS [None]
